FAERS Safety Report 19358525 (Version 5)
Quarter: 2025Q4

REPORT INFORMATION
  Report Type: Spontaneous
  Country: JP (occurrence: JP)
  Receive Date: 20210601
  Receipt Date: 20251217
  Transmission Date: 20260117
  Serious: Yes (Other)
  Sender: AMGEN
  Company Number: JP-AMGEN-JPNSP2021082139

PATIENT

DRUGS (6)
  1. PROLIA [Suspect]
     Active Substance: DENOSUMAB
     Indication: Osteoporosis postmenopausal
     Dosage: 60 MILLIGRAM, Q6MO
     Route: 058
  2. EVENITY [Suspect]
     Active Substance: ROMOSOZUMAB-AQQG
     Indication: Osteoporosis postmenopausal
     Dosage: 210 MILLIGRAM
     Route: 058
  3. ALFACALCIDOL [Concomitant]
     Active Substance: ALFACALCIDOL
     Dosage: UNK
  4. ELDECALCITOL [Concomitant]
     Active Substance: ELDECALCITOL
     Dosage: UNK
  5. ERGOCALCIFEROL [Concomitant]
     Active Substance: ERGOCALCIFEROL
     Dosage: UNK
  6. CALCIUM [Concomitant]
     Active Substance: CALCIUM
     Dosage: UNK

REACTIONS (21)
  - Spinal fracture [Unknown]
  - Subarachnoid haemorrhage [Unknown]
  - Aneurysm ruptured [Unknown]
  - Pathological fracture [Unknown]
  - Humerus fracture [Unknown]
  - Radius fracture [Unknown]
  - Tibia fracture [Unknown]
  - Patella fracture [Unknown]
  - Fracture [Unknown]
  - Rib fracture [Unknown]
  - Heart valve operation [Unknown]
  - Injection site pain [Unknown]
  - Blood pressure increased [Unknown]
  - Blood pressure decreased [Unknown]
  - Flushing [Unknown]
  - Dizziness [Unknown]
  - Herpes zoster [Unknown]
  - Therapeutic product effect incomplete [Unknown]
  - Oral lichen planus [Unknown]
  - Tartrate-resistant acid phosphatase increased [Unknown]
  - Serum procollagen type I N-terminal propeptide decreased [Unknown]
